FAERS Safety Report 9130877 (Version 2)
Quarter: 2013Q1

REPORT INFORMATION
  Report Type: Spontaneous
  Country: FR (occurrence: FR)
  Receive Date: 20130301
  Receipt Date: 20130326
  Transmission Date: 20140127
  Serious: Yes (Hospitalization, Other)
  Sender: FDA-Public Use
  Company Number: FR-ASTRAZENECA-2013SE13051

PATIENT
  Age: 6 Month
  Sex: Male
  Weight: 6 kg

DRUGS (4)
  1. SYNAGIS [Suspect]
     Indication: ANTIVIRAL PROPHYLAXIS
     Route: 030
  2. SYNAGIS [Suspect]
     Indication: PREMATURE BABY
     Route: 030
  3. SYNAGIS [Suspect]
     Indication: ANTIVIRAL PROPHYLAXIS
     Route: 030
     Dates: start: 20130131
  4. SYNAGIS [Suspect]
     Indication: PREMATURE BABY
     Route: 030
     Dates: start: 20130131

REACTIONS (4)
  - Bronchiolitis [Unknown]
  - Cough [Unknown]
  - Vomiting [Unknown]
  - Decreased appetite [Unknown]
